FAERS Safety Report 9885514 (Version 2)
Quarter: 2014Q1

REPORT INFORMATION
  Report Type: Spontaneous
  Country: US (occurrence: US)
  Receive Date: 20140210
  Receipt Date: 20140327
  Transmission Date: 20141002
  Serious: Yes (Other)
  Sender: FDA-Public Use
  Company Number: US-UCBSA-111406

PATIENT
  Age: 58 Year
  Sex: Male
  Weight: 70.3 kg

DRUGS (8)
  1. CIMZIA [Suspect]
     Indication: ARTHRITIS
     Dosage: LOT NO : 116271 FOR EVENTS OF PIMPLE LIKE AREAS AND FLU
     Route: 058
     Dates: start: 2012, end: 201401
  2. CIMZIA [Suspect]
     Indication: CROHN^S DISEASE
     Dosage: LOT NO : 116271 FOR EVENTS OF PIMPLE LIKE AREAS AND FLU
     Route: 058
     Dates: start: 2012, end: 201401
  3. CIMZIA [Suspect]
     Indication: ARTHRITIS
     Route: 058
     Dates: start: 2014
  4. CIMZIA [Suspect]
     Indication: CROHN^S DISEASE
     Route: 058
     Dates: start: 2014
  5. PREDNISONE [Concomitant]
  6. POTASSIUM [Concomitant]
     Indication: CROHN^S DISEASE
     Dosage: 2 PILLS
     Route: 048
  7. POTASSIUM [Concomitant]
     Indication: NEPHROLITHIASIS
     Dosage: 2 PILLS
     Route: 048
  8. B 12 INJECTION [Concomitant]
     Indication: CROHN^S DISEASE

REACTIONS (4)
  - Abscess [Recovered/Resolved]
  - Acne [Recovered/Resolved]
  - Influenza [Recovered/Resolved]
  - Rash maculo-papular [Recovering/Resolving]
